FAERS Safety Report 12174778 (Version 2)
Quarter: 2016Q2

REPORT INFORMATION
  Report Type: Spontaneous
  Country: US (occurrence: US)
  Receive Date: 20160314
  Receipt Date: 20160426
  Transmission Date: 20160815
  Serious: No
  Sender: FDA-Public Use
  Company Number: US-009507513-1603USA005887

PATIENT

DRUGS (3)
  1. GRASTEK [Suspect]
     Active Substance: PHLEUM PRATENSE POLLEN
     Indication: SEASONAL ALLERGY
     Dosage: 2800 BAU, ONCE A DAY, STRENGTH: 2800 BAU
     Route: 060
  2. SINGULAIR [Concomitant]
     Active Substance: MONTELUKAST SODIUM
     Dosage: UNK
     Route: 048
  3. ANTIHIS [Concomitant]
     Dosage: UNK

REACTIONS (2)
  - Throat irritation [Recovered/Resolved]
  - Oral pruritus [Recovered/Resolved]
